FAERS Safety Report 17652150 (Version 1)
Quarter: 2020Q2

REPORT INFORMATION
  Report Type: Spontaneous
  Country: CO (occurrence: CO)
  Receive Date: 20200409
  Receipt Date: 20200409
  Transmission Date: 20200713
  Serious: Yes (Other)
  Sender: FDA-Public Use
  Company Number: US-SLATE RUN PHARMACEUTICALS-SLTR-AE-20-22

PATIENT
  Age: 42 Year
  Sex: Male

DRUGS (3)
  1. CASPOFUNGIN [Concomitant]
     Active Substance: CASPOFUNGIN
     Dosage: 70 MG/D LOADING DOSE, FOLLOWED BY 50 MG/D MAINTENANCE DOSE
  2. AMPHOTERICIN B DEOXYCOLATE [Concomitant]
  3. 70436-029-80 VORICONAZOLE FOR INJECTION DRY VIAL 200 MG [Suspect]
     Active Substance: VORICONAZOLE
     Indication: BRONCHOPULMONARY ASPERGILLOSIS
     Route: 042

REACTIONS (6)
  - Drug resistance [Unknown]
  - Rash papular [Unknown]
  - Fungal infection [Unknown]
  - Pyrexia [Unknown]
  - Multiple organ dysfunction syndrome [Fatal]
  - Respiratory failure [Unknown]
